FAERS Safety Report 21598387 (Version 2)
Quarter: 2022Q4

REPORT INFORMATION
  Report Type: Spontaneous
  Country: US (occurrence: US)
  Receive Date: 20221115
  Receipt Date: 20221129
  Transmission Date: 20230113
  Serious: Yes (Hospitalization, Other)
  Sender: FDA-Public Use
  Company Number: US-002147023-NVSC2022US252449

PATIENT
  Sex: Male

DRUGS (8)
  1. AMPICILLIN [Suspect]
     Active Substance: AMPICILLIN
     Indication: Foetal exposure during pregnancy
     Dosage: UNK
     Route: 064
  2. ERYTHROMYCIN [Suspect]
     Active Substance: ERYTHROMYCIN
     Indication: Foetal exposure during pregnancy
     Dosage: UNK
     Route: 064
  3. ERYTHROMYCIN [Suspect]
     Active Substance: ERYTHROMYCIN
     Dosage: UNK
     Route: 064
  4. AMOXICILLIN [Suspect]
     Active Substance: AMOXICILLIN
     Indication: Foetal exposure during pregnancy
     Dosage: UNK
     Route: 064
  5. CLINDAMYCIN [Suspect]
     Active Substance: CLINDAMYCIN
     Indication: Foetal exposure during pregnancy
     Dosage: UNK
     Route: 064
  6. TOBRAMYCIN [Suspect]
     Active Substance: TOBRAMYCIN
     Indication: Foetal exposure during pregnancy
     Dosage: UNK
     Route: 064
  7. MISOPROSTOL [Suspect]
     Active Substance: MISOPROSTOL
     Indication: Foetal exposure during pregnancy
     Dosage: UNK
     Route: 064
  8. OXYTOCIN [Suspect]
     Active Substance: OXYTOCIN
     Indication: Foetal exposure during pregnancy
     Dosage: UNK
     Route: 064

REACTIONS (9)
  - Hypoglycaemia neonatal [Unknown]
  - Ecchymosis [Recovered/Resolved]
  - Oedema peripheral [Recovered/Resolved]
  - Compartment syndrome [Unknown]
  - Neonatal respiratory distress [Unknown]
  - Hyperbilirubinaemia neonatal [Recovered/Resolved]
  - Low birth weight baby [Recovered/Resolved]
  - Premature baby [Unknown]
  - Foetal exposure during pregnancy [Unknown]
